FAERS Safety Report 25386847 (Version 1)
Quarter: 2025Q2

REPORT INFORMATION
  Report Type: Spontaneous
  Country: VE (occurrence: VE)
  Receive Date: 20250602
  Receipt Date: 20250602
  Transmission Date: 20250717
  Serious: Yes (Life-Threatening, Other)
  Sender: NOVARTIS
  Company Number: VE-002147023-NVSC2024VE188274

PATIENT
  Sex: Female

DRUGS (1)
  1. GLIVEC [Suspect]
     Active Substance: IMATINIB MESYLATE
     Indication: Chronic myeloid leukaemia
     Route: 065

REACTIONS (8)
  - Platelet count decreased [Unknown]
  - Platelet aggregation abnormal [Unknown]
  - White blood cell count increased [Unknown]
  - Headache [Unknown]
  - General physical health deterioration [Unknown]
  - Laboratory test abnormal [Unknown]
  - Gingival disorder [Unknown]
  - Tooth disorder [Unknown]
